FAERS Safety Report 19824759 (Version 4)
Quarter: 2022Q1

REPORT INFORMATION
  Report Type: Report from Study
  Country: US (occurrence: US)
  Receive Date: 20210914
  Receipt Date: 20220128
  Transmission Date: 20220423
  Serious: No
  Sender: FDA-Public Use
  Company Number: US-ACADIA PHARMACEUTICALS INC.-ACA-2021-PIM-003070

PATIENT
  Age: 83 Year
  Sex: Male
  Weight: 66 kg

DRUGS (7)
  1. NUPLAZID [Suspect]
     Active Substance: PIMAVANSERIN TARTRATE
     Indication: Parkinson^s disease psychosis
     Dosage: 34 MILLIGRAM, QD
     Route: 048
     Dates: start: 20210728
  2. NUPLAZID [Suspect]
     Active Substance: PIMAVANSERIN TARTRATE
     Indication: Hallucination
     Dosage: 34 MILLIGRAM, QD
     Route: 048
     Dates: start: 202108
  3. NUPLAZID [Suspect]
     Active Substance: PIMAVANSERIN TARTRATE
     Indication: Delusion
     Dosage: TOOK TWO CAPSULES
     Dates: start: 20210817, end: 20210817
  4. NUPLAZID [Suspect]
     Active Substance: PIMAVANSERIN TARTRATE
     Dosage: 34 MILLIGRAM, QD
     Route: 065
     Dates: start: 202108
  5. ASPIRIN [Concomitant]
     Active Substance: ASPIRIN
  6. CARBIDOPA [Concomitant]
     Active Substance: CARBIDOPA
     Dosage: ONE IN THE MORNING AND ONE AT BEDTIME
  7. VITAMINS [Concomitant]
     Active Substance: VITAMINS

REACTIONS (16)
  - Nocturia [Not Recovered/Not Resolved]
  - Therapeutic response unexpected [Unknown]
  - Delusion [Recovered/Resolved]
  - Depressed mood [Not Recovered/Not Resolved]
  - Therapeutic product effect incomplete [Not Recovered/Not Resolved]
  - Therapeutic response unexpected [Unknown]
  - Weight decreased [Unknown]
  - Parkinson^s disease [Not Recovered/Not Resolved]
  - COVID-19 [Unknown]
  - Lip injury [Recovering/Resolving]
  - Hallucination [Not Recovered/Not Resolved]
  - Fall [Recovering/Resolving]
  - Hallucination, visual [Not Recovered/Not Resolved]
  - Fall [Unknown]
  - Hallucination [Recovering/Resolving]
  - Accidental overdose [Unknown]

NARRATIVE: CASE EVENT DATE: 20210817
